FAERS Safety Report 11455130 (Version 2)
Quarter: 2015Q3

REPORT INFORMATION
  Report Type: Spontaneous
  Country: US (occurrence: US)
  Receive Date: 20150903
  Receipt Date: 20150915
  Transmission Date: 20151125
  Serious: No
  Sender: FDA-Public Use
  Company Number: US-BAYER-2015-414151

PATIENT
  Age: 40 Year
  Sex: Female
  Weight: 63.49 kg

DRUGS (2)
  1. CLARITIN-D 24 HOUR [Suspect]
     Active Substance: LORATADINE\PSEUDOEPHEDRINE SULFATE
     Dosage: UNK
     Route: 048
  2. CLARITIN-D 24 HOUR [Suspect]
     Active Substance: LORATADINE\PSEUDOEPHEDRINE SULFATE
     Dosage: 2 DF, ONCE
     Route: 048
     Dates: start: 20150901, end: 20150901

REACTIONS (3)
  - Headache [None]
  - Drug ineffective [None]
  - Accidental exposure to product [None]

NARRATIVE: CASE EVENT DATE: 20150901
